FAERS Safety Report 21982989 (Version 5)
Quarter: 2023Q4

REPORT INFORMATION
  Report Type: Other
  Country: CA (occurrence: None)
  Receive Date: 20230213
  Receipt Date: 20231005
  Transmission Date: 20240110
  Serious: No
  Sender: FDA-Public Use
  Company Number: CA-ROCHE-3283724

PATIENT
  Age: 51 Year
  Sex: Female

DRUGS (3)
  1. OCREVUS [Suspect]
     Active Substance: OCRELIZUMAB
     Indication: Relapsing-remitting multiple sclerosis
     Dosage: MORE DOSAGE INFORMATION IS 300 MG AT DAY 0 AND 14, THEN 600 MG EVERY 6 MONTH
     Route: 042
     Dates: start: 20190813
  2. DAYVIGO [Concomitant]
     Active Substance: LEMBOREXANT
     Dosage: TAKEN FOR SLEEP AT BEDTIME AS NEEDED
  3. DALFAMPRIDINE [Concomitant]
     Active Substance: DALFAMPRIDINE
     Dosage: TAKEN TWICE DAILY EVERY 12 HOURS TO IMPROVE WALKING FOR MS PATIENTS

REACTIONS (5)
  - COVID-19 [Recovered/Resolved with Sequelae]
  - Hypotension [Not Recovered/Not Resolved]
  - Mobility decreased [Not Recovered/Not Resolved]
  - Blood test abnormal [Unknown]
  - Constipation [Not Recovered/Not Resolved]

NARRATIVE: CASE EVENT DATE: 20230126
